FAERS Safety Report 9185763 (Version 1)
Quarter: 2013Q1

REPORT INFORMATION
  Report Type: Spontaneous
  Country: US (occurrence: US)
  Receive Date: 20130325
  Receipt Date: 20130325
  Transmission Date: 20140127
  Serious: No
  Sender: FDA-Public Use
  Company Number: US-009507513-1303USA005966

PATIENT
  Age: 53 Year
  Sex: Male

DRUGS (2)
  1. PEGINTRON [Suspect]
     Indication: HEPATITIS C
     Dosage: MAX DOSE (150MCG) ONCE A WEEK EVERY FRIDAY MORNING AT 7AM
     Route: 058
     Dates: start: 20130104
  2. REBETOL [Suspect]
     Route: 048

REACTIONS (6)
  - Arthralgia [Recovering/Resolving]
  - Chills [Recovering/Resolving]
  - Tremor [Recovering/Resolving]
  - Influenza like illness [Recovering/Resolving]
  - Drug effect decreased [Unknown]
  - Incorrect storage of drug [Unknown]
